FAERS Safety Report 9494669 (Version 1)
Quarter: 2013Q3

REPORT INFORMATION
  Report Type: Spontaneous
  Country: US (occurrence: None)
  Receive Date: 20130830
  Receipt Date: 20130830
  Transmission Date: 20140515
  Serious: No
  Sender: FDA-Public Use
  Company Number: None

PATIENT
  Age: 51 Year
  Sex: Female
  Weight: 65.77 kg

DRUGS (1)
  1. CIPROFLOXACIN 500MG [Suspect]
     Indication: URINARY TRACT INFECTION
     Dosage: 500MG  TWICE DAILY  TAKEN BY MOUTH
     Route: 048

REACTIONS (3)
  - Myalgia [None]
  - Arthralgia [None]
  - Joint swelling [None]
